FAERS Safety Report 4677478-1 (Version None)
Quarter: 2005Q2

REPORT INFORMATION
  Report Type: 
  Country: None (occurrence: None)
  Receive Date: 20050531
  Receipt Date: 20050523
  Transmission Date: 20051028
  Serious: Yes (Other)
  Sender: FDA-Public Use
  Company Number: IN-BRISTOL-MYERS SQUIBB COMPANY-12979076

PATIENT
  Age: 37 Year
  Sex: Female

DRUGS (5)
  1. CYCLOPHOSPHAMIDE [Suspect]
     Indication: LEPROSY
     Route: 042
  2. CYCLOPHOSPHAMIDE [Interacting]
  3. THALIDOMIDE [Interacting]
     Indication: LEPROSY
  4. DEXAMETHASONE [Interacting]
     Indication: LEPROSY
     Dosage: ON 3 CONSECUTIVE DAYS OF CYCLE
     Route: 042
  5. PREDNISOLONE [Concomitant]
     Indication: LEPROSY
     Route: 048

REACTIONS (2)
  - DEEP VEIN THROMBOSIS [None]
  - DRUG INTERACTION [None]
